FAERS Safety Report 8554843-3 (Version None)
Quarter: 2012Q3

REPORT INFORMATION
  Report Type: 
  Country: None (occurrence: None)
  Receive Date: 20120725
  Receipt Date: 20120725
  Transmission Date: 20120928
  Serious: Yes (Hospitalization)
  Sender: FDA-Public Use
  Company Number: None

PATIENT
  Sex: Female
  Weight: 94.5 kg

DRUGS (2)
  1. CISPLATIN [Suspect]
     Dosage: 105 MG
  2. FLUOROURACIL [Suspect]
     Dosage: 11200 MG

REACTIONS (2)
  - DECREASED APPETITE [None]
  - LYMPHOCYTE COUNT DECREASED [None]
